FAERS Safety Report 17507322 (Version 1)
Quarter: 2020Q1

REPORT INFORMATION
  Report Type: Spontaneous
  Country: US (occurrence: US)
  Receive Date: 20200306
  Receipt Date: 20200306
  Transmission Date: 20200409
  Serious: No
  Sender: FDA-Public Use
  Company Number: NVSC2020US055741

PATIENT
  Sex: Female

DRUGS (1)
  1. ZARXIO [Suspect]
     Active Substance: FILGRASTIM-SNDZ
     Indication: OVARIAN CANCER
     Dosage: 300 UG, UNKNOWN (EVERY 28 HOURS)
     Route: 058

REACTIONS (1)
  - Bone pain [Recovered/Resolved]
